FAERS Safety Report 5389859-1 (Version None)
Quarter: 2007Q3

REPORT INFORMATION
  Report Type: 
  Country: None (occurrence: None)
  Receive Date: 20070718
  Receipt Date: 20070706
  Transmission Date: 20080115
  Serious: Yes (Other)
  Sender: FDA-Public Use
  Company Number: PHNU2007DE02415

PATIENT
  Age: 57 Year
  Sex: Female
  Weight: 99 kg

DRUGS (3)
  1. LEPONEX [Suspect]
     Indication: SCHIZOPHRENIA
     Dosage: 325MG/DAY
     Route: 048
     Dates: start: 20070223, end: 20070522
  2. CIPRALEX [Suspect]
     Dosage: 15MG/DAY
     Route: 048
     Dates: start: 20070116
  3. SOLIAN [Concomitant]
     Indication: HALLUCINATION
     Dosage: 200MG/DAY
     Route: 048
     Dates: start: 20070518

REACTIONS (5)
  - DRUG INTERACTION [None]
  - DRUG LEVEL INCREASED [None]
  - LETHARGY [None]
  - SALIVARY HYPERSECRETION [None]
  - SOMNOLENCE [None]
